FAERS Safety Report 16831570 (Version 1)
Quarter: 2019Q4

REPORT INFORMATION
  Report Type: Spontaneous
  Country: US (occurrence: US)
  Receive Date: 20190919
  Receipt Date: 20190919
  Transmission Date: 20200122
  Serious: Yes (Hospitalization)
  Sender: FDA-Public Use
  Company Number: None

PATIENT
  Age: 43 Year
  Sex: Male

DRUGS (9)
  1. LEVALBUTEROL AER 45/ACT [Concomitant]
  2. URSODIOL CAP 300 MG [Concomitant]
  3. ORKAMBI [Suspect]
     Active Substance: IVACAFTOR\LUMACAFTOR
     Indication: CYSTIC FIBROSIS
     Route: 048
     Dates: start: 20160803
  4. CEPHALEXIN CAP 500 MG [Concomitant]
  5. TOBI PODHANDLER 28 MG CAP [Concomitant]
  6. METFORMIN TAB 500 MG ER [Concomitant]
  7. FLUTICASONE SPR 50 MCG [Concomitant]
  8. NOVOLOG INJ FLEXPEN [Concomitant]
  9. CREON [Suspect]
     Active Substance: PANCRELIPASE AMYLASE\PANCRELIPASE LIPASE\PANCRELIPASE PROTEASE
     Indication: CYSTIC FIBROSIS
     Route: 048
     Dates: start: 20180319

REACTIONS (1)
  - Epistaxis [None]
